FAERS Safety Report 9086712 (Version 2)
Quarter: 2013Q1

REPORT INFORMATION
  Report Type: Spontaneous
  Country: US (occurrence: US)
  Receive Date: 20130131
  Receipt Date: 20130313
  Transmission Date: 20140127
  Serious: Yes (Hospitalization)
  Sender: FDA-Public Use
  Company Number: US-PFIZER INC-2013036577

PATIENT
  Age: 48 Year
  Sex: Male

DRUGS (5)
  1. LYRICA [Suspect]
     Indication: PAIN
     Dosage: UNK, 3X/DAY
     Route: 048
  2. ATENOLOL [Concomitant]
     Indication: CORONARY ARTERY DISEASE
     Dosage: 100 MG, DAILY
     Dates: start: 2010
  3. LANTUS [Concomitant]
     Indication: DIABETES MELLITUS
     Dosage: 45 UNITS NIGHTLY
     Dates: start: 2010
  4. LISPRO [Concomitant]
     Indication: DIABETES MELLITUS
     Dosage: 20 UNITS TID
     Dates: start: 2010
  5. INFLUENZA VACCINE [Concomitant]
     Dosage: UNK
     Dates: start: 20121127

REACTIONS (1)
  - Cerebrovascular accident [Recovered/Resolved with Sequelae]
